FAERS Safety Report 12254839 (Version 2)
Quarter: 2016Q2

REPORT INFORMATION
  Report Type: Report from Study
  Country: NL (occurrence: NL)
  Receive Date: 20160411
  Receipt Date: 20160506
  Transmission Date: 20160815
  Serious: Yes (Hospitalization)
  Sender: FDA-Public Use
  Company Number: NL-ABBVIE-16P-114-1600646-00

PATIENT
  Sex: Male
  Weight: 92 kg

DRUGS (1)
  1. LUCRIN DEPOT [Suspect]
     Active Substance: LEUPROLIDE ACETATE
     Indication: PROSTATE CANCER
     Route: 050
     Dates: start: 20131111

REACTIONS (3)
  - Hemiparesis [Recovered/Resolved]
  - Venous occlusion [Recovered/Resolved]
  - Bladder catheterisation [Not Recovered/Not Resolved]

NARRATIVE: CASE EVENT DATE: 2016
